FAERS Safety Report 5221941-1 (Version None)
Quarter: 2007Q1

REPORT INFORMATION
  Report Type: 
  Country: None (occurrence: None)
  Receive Date: 20070129
  Receipt Date: 20060123
  Transmission Date: 20070707
  Serious: No
  Sender: FDA-Public Use
  Company Number: US-GLAXOSMITHKLINE-A0590765A

PATIENT
  Age: 42 Year
  Sex: Female

DRUGS (2)
  1. WELLBUTRIN [Suspect]
     Indication: DEPRESSION
     Route: 048
  2. BLOOD PRESSURE MEDICATION [Concomitant]
     Route: 065

REACTIONS (4)
  - BIPOLAR DISORDER [None]
  - DRUG INEFFECTIVE [None]
  - WEIGHT DECREASED [None]
  - WEIGHT INCREASED [None]
